FAERS Safety Report 25328844 (Version 2)
Quarter: 2025Q2

REPORT INFORMATION
  Report Type: Spontaneous
  Country: US (occurrence: US)
  Receive Date: 20250519
  Receipt Date: 20250521
  Transmission Date: 20250716
  Serious: Yes (Other)
  Sender: AMNEAL
  Company Number: US-AMNEAL PHARMACEUTICALS-2025-AMRX-00556

PATIENT
  Age: 53 Year
  Sex: Female
  Weight: 57.143 kg

DRUGS (12)
  1. CREXONT [Suspect]
     Active Substance: CARBIDOPA\LEVODOPA
     Indication: Parkinson^s disease
     Dosage: 52.5/210 MG 2 CAPSULES, 3 /DAY
     Route: 048
     Dates: start: 202412
  2. CREXONT [Suspect]
     Active Substance: CARBIDOPA\LEVODOPA
     Dosage: 02 CAPSULE 52.5/210MG AT 7 AM, THEN 35/140 MG EVERY 3 HRS
     Route: 048
  3. CREXONT [Suspect]
     Active Substance: CARBIDOPA\LEVODOPA
     Dosage: 02 CAPSULE 52.5/210MG AT 7 AM, THEN 35/140 MG EVERY 6 HRS
     Route: 048
  4. CREXONT [Suspect]
     Active Substance: CARBIDOPA\LEVODOPA
     Route: 048
  5. CREXONT [Suspect]
     Active Substance: CARBIDOPA\LEVODOPA
     Route: 048
     Dates: end: 20250402
  6. RYTARY [Suspect]
     Active Substance: CARBIDOPA\LEVODOPA
     Indication: Parkinson^s disease
     Dosage: 195MG, 2 CAPSULES, 3 /DAY
     Route: 065
  7. RYTARY [Suspect]
     Active Substance: CARBIDOPA\LEVODOPA
     Dosage: 195MG, 2 CAPSULES, 3 /DAY
     Route: 065
     Dates: start: 20250403
  8. RYTARY [Suspect]
     Active Substance: CARBIDOPA\LEVODOPA
     Route: 065
     Dates: start: 202504
  9. RYTARY [Suspect]
     Active Substance: CARBIDOPA\LEVODOPA
     Route: 065
     Dates: start: 202504
  10. SINEMET [Suspect]
     Active Substance: CARBIDOPA\LEVODOPA
     Indication: Parkinson^s disease
     Route: 065
  11. GABAPENTIN [Concomitant]
     Active Substance: GABAPENTIN
     Indication: Product used for unknown indication
     Dosage: 100 MILLIGRAM, QD AS NEEDED
     Route: 065
  12. KLONOPIN [Concomitant]
     Active Substance: CLONAZEPAM
     Indication: Rapid eye movement sleep behaviour disorder
     Route: 065

REACTIONS (31)
  - Carpal tunnel syndrome [Not Recovered/Not Resolved]
  - Dystonia [Recovering/Resolving]
  - Suicidal ideation [Recovering/Resolving]
  - Swelling [Recovering/Resolving]
  - Hypoaesthesia [Recovering/Resolving]
  - Pain [Recovering/Resolving]
  - Burning sensation [Recovering/Resolving]
  - Erythema [Unknown]
  - Urinary incontinence [Recovering/Resolving]
  - Depression [Recovering/Resolving]
  - Irritability [Recovering/Resolving]
  - Hypoaesthesia [Recovering/Resolving]
  - Peripheral swelling [Recovering/Resolving]
  - Paraesthesia [Recovering/Resolving]
  - Pain [Recovering/Resolving]
  - Cyst [Unknown]
  - Radiculopathy [Unknown]
  - Migraine [Recovering/Resolving]
  - Pain in extremity [Recovering/Resolving]
  - Weight decreased [Recovering/Resolving]
  - Decreased appetite [Recovering/Resolving]
  - Therapeutic response shortened [Unknown]
  - Drug effect less than expected [Unknown]
  - Atrophy [Unknown]
  - Loss of personal independence in daily activities [Recovering/Resolving]
  - Dyskinesia [Recovered/Resolved]
  - Headache [Recovering/Resolving]
  - Anxiety [Recovering/Resolving]
  - Musculoskeletal stiffness [Unknown]
  - Orthostatic hypotension [Recovering/Resolving]
  - Product substitution issue [Unknown]

NARRATIVE: CASE EVENT DATE: 20240409
